FAERS Safety Report 10004615 (Version 2)
Quarter: 2014Q1

REPORT INFORMATION
  Report Type: Spontaneous
  Country: JP (occurrence: JP)
  Receive Date: 20140312
  Receipt Date: 20140317
  Transmission Date: 20141002
  Serious: Yes (Hospitalization)
  Sender: FDA-Public Use
  Company Number: PHHY2014JP026553

PATIENT
  Age: 60 Year
  Sex: Male

DRUGS (6)
  1. RIBAVIRIN [Suspect]
     Indication: HEPATITIS C RNA
     Dosage: 800 MG, UNK
     Dates: start: 201201
  2. RIBAVIRIN [Suspect]
     Indication: HEPATITIS B DNA INCREASED
  3. PEG//PEGINTERFERON ALFA-2B [Suspect]
     Indication: HEPATITIS C RNA
     Dosage: 100 UG, UNK
     Dates: start: 201201
  4. PEG//PEGINTERFERON ALFA-2B [Suspect]
     Indication: HEPATITIS B DNA INCREASED
  5. TELAPREVIR [Suspect]
     Indication: HEPATITIS C RNA
     Dosage: 2250 MG, UNK
     Dates: start: 201201
  6. TELAPREVIR [Suspect]
     Indication: HEPATITIS B DNA INCREASED
     Dosage: 750 MG, UNK

REACTIONS (9)
  - Drug reaction with eosinophilia and systemic symptoms [Recovered/Resolved]
  - Rash [Recovered/Resolved]
  - Skin lesion [Recovered/Resolved]
  - Generalised erythema [Recovered/Resolved]
  - Excoriation [Recovered/Resolved]
  - Face oedema [Recovered/Resolved]
  - Lymphadenopathy [Recovered/Resolved]
  - Skin exfoliation [Recovered/Resolved]
  - Pyrexia [Recovered/Resolved]
